FAERS Safety Report 8417500-X (Version None)
Quarter: 2012Q2

REPORT INFORMATION
  Report Type: 
  Country: None (occurrence: None)
  Receive Date: 20120606
  Receipt Date: 20120524
  Transmission Date: 20120825
  Serious: Yes (Other)
  Sender: FDA-Public Use
  Company Number: FR-MYLANLABS-2012S1010501

PATIENT
  Age: 10 Year
  Sex: Male
  Weight: 36 kg

DRUGS (4)
  1. METHOTREXATE [Suspect]
     Route: 042
  2. METHOTREXATE [Suspect]
     Dates: start: 20120301
  3. METHOTREXATE [Suspect]
     Dates: start: 20120401
  4. METHOTREXATE [Suspect]
     Indication: BONE SARCOMA
     Route: 042
     Dates: start: 20120131

REACTIONS (2)
  - DRUG CLEARANCE DECREASED [None]
  - BLOOD CREATININE INCREASED [None]
